FAERS Safety Report 8986437 (Version 1)
Quarter: 2012Q4

REPORT INFORMATION
  Report Type: 
  Country: US (occurrence: US)
  Receive Date: 20121226
  Receipt Date: 20121226
  Transmission Date: 20130627
  Serious: Yes (Other)
  Sender: FDA-Public Use
  Company Number: US-ROCHE-1171150

PATIENT

DRUGS (5)
  1. BEVACIZUMAB [Suspect]
     Indication: RECTAL CANCER
     Route: 065
  2. CAPECITABINE [Suspect]
     Indication: RECTAL CANCER
     Dosage: 625 to 825 mg/m^2
     Route: 065
  3. CETUXIMAB [Suspect]
     Indication: RECTAL CANCER
     Route: 065
  4. IRINOTECAN [Suspect]
     Indication: RECTAL CANCER
     Route: 065
  5. OXALIPLATIN [Suspect]
     Indication: RECTAL CANCER
     Route: 065

REACTIONS (2)
  - Proctitis [Unknown]
  - Diarrhoea [Unknown]
